FAERS Safety Report 9765242 (Version 1)
Quarter: 2013Q4

REPORT INFORMATION
  Report Type: Spontaneous
  Country: US (occurrence: US)
  Receive Date: 20131217
  Receipt Date: 20131217
  Transmission Date: 20140711
  Serious: No
  Sender: FDA-Public Use
  Company Number: US-GLAXOSMITHKLINE-A1044579A

PATIENT
  Age: 47 Year
  Sex: Male

DRUGS (3)
  1. SORIATANE [Suspect]
     Indication: PSORIASIS
     Dosage: 10MG TWICE PER DAY
     Route: 048
     Dates: start: 20130703, end: 201310
  2. TAZORAC GEL [Concomitant]
  3. UREA CREAM [Concomitant]

REACTIONS (1)
  - Eczema [Unknown]
